FAERS Safety Report 23727771 (Version 1)
Quarter: 2024Q2

REPORT INFORMATION
  Report Type: Spontaneous
  Country: US (occurrence: US)
  Receive Date: 20240410
  Receipt Date: 20240410
  Transmission Date: 20240716
  Serious: No
  Sender: FDA-Public Use
  Company Number: US-VERTEX PHARMACEUTICALS-2023-015170

PATIENT

DRUGS (1)
  1. TRIKAFTA [Suspect]
     Active Substance: ELEXACAFTOR\IVACAFTOR\TEZACAFTOR
     Indication: Cystic fibrosis
     Dosage: UNK
     Route: 048
     Dates: start: 2020

REACTIONS (7)
  - Fear [Unknown]
  - Feeling abnormal [Unknown]
  - Weight increased [Unknown]
  - Anxiety [Unknown]
  - Illness [Unknown]
  - Anger [Unknown]
  - Frustration tolerance decreased [Unknown]
